FAERS Safety Report 8594630-3 (Version None)
Quarter: 2012Q3

REPORT INFORMATION
  Report Type: 
  Country: None (occurrence: None)
  Receive Date: 20120815
  Receipt Date: 20120808
  Transmission Date: 20120928
  Serious: No
  Sender: FDA-Public Use
  Company Number: US-PFIZER INC-2012132697

PATIENT
  Age: 55 Year
  Sex: Male
  Weight: 127 kg

DRUGS (7)
  1. AMITRIPTYLINE [Concomitant]
     Indication: DEPRESSION
     Dosage: UNK
  2. JANUVIA [Concomitant]
     Indication: DIABETES MELLITUS
     Dosage: UNK
  3. METHADONE [Concomitant]
     Indication: DEPRESSION
     Dosage: UNK
  4. DEPO-TESTOSTERONE [Suspect]
     Indication: BLOOD TESTOSTERONE DECREASED
     Dosage: UNK
     Dates: start: 20110801
  5. LISINOPRIL [Concomitant]
     Indication: HYPERTENSION
     Dosage: UNK
  6. PROTONIX [Concomitant]
     Indication: GASTROOESOPHAGEAL REFLUX DISEASE
     Dosage: UNK
  7. METOPROLOL [Concomitant]
     Indication: CARDIAC DISORDER
     Dosage: UNK

REACTIONS (5)
  - POOR QUALITY DRUG ADMINISTERED [None]
  - PRODUCT DEPOSIT [None]
  - DRUG INEFFECTIVE [None]
  - PRODUCT CONTAINER SEAL ISSUE [None]
  - PRODUCT PACKAGING QUANTITY ISSUE [None]
